FAERS Safety Report 15721911 (Version 2)
Quarter: 2018Q4

REPORT INFORMATION
  Report Type: Report from Study
  Country: CN (occurrence: CN)
  Receive Date: 20181214
  Receipt Date: 20181222
  Transmission Date: 20190205
  Serious: Yes (Hospitalization)
  Sender: FDA-Public Use
  Company Number: CN-AMGEN-CHNCT2018177015

PATIENT
  Age: 73 Year
  Sex: Female

DRUGS (17)
  1. CINACALCET HCL [Suspect]
     Active Substance: CINACALCET HYDROCHLORIDE
     Dosage: 50 MG, UNK
     Route: 048
     Dates: start: 20180806, end: 20181009
  2. VITAMIN B [Concomitant]
     Active Substance: VITAMIN B
     Indication: NEPHROGENIC ANAEMIA
     Dosage: 1 DF, BID
     Route: 048
  3. LACTOSE [Concomitant]
     Active Substance: LACTOSE
     Dosage: UNK UNK, BID
     Route: 048
     Dates: start: 201812, end: 201812
  4. CALCITRIOL. [Concomitant]
     Active Substance: CALCITRIOL
     Indication: HYPERPARATHYROIDISM SECONDARY
     Dosage: 0.25 MUG, QD
     Route: 048
     Dates: start: 20181128
  5. FOLIC ACID. [Concomitant]
     Active Substance: FOLIC ACID
     Indication: NEPHROGENIC ANAEMIA
     Dosage: 1-2 PILLS, QD
     Route: 048
  6. LOW MOLECULAR WEIGHT HEPARIN SODIUM [Concomitant]
     Active Substance: HEPARIN SODIUM
     Indication: HAEMODIALYSIS
     Dosage: 4230 UNIT, 3 TIMES/WK
     Route: 042
     Dates: start: 20180103
  7. RECOMBINANT HUMAN ERYTHROPOIETIN [Concomitant]
     Active Substance: ERYTHROPOIETIN
     Indication: NEPHROGENIC ANAEMIA
     Dosage: 3000 IU, 2 TIMES/WK
     Route: 042
     Dates: start: 20170918
  8. LACTOSE [Concomitant]
     Active Substance: LACTOSE
     Indication: CONSTIPATION
     Dosage: 15 ML, QD
     Route: 048
     Dates: start: 20180113
  9. CALCIUM ACETATE. [Concomitant]
     Active Substance: CALCIUM ACETATE
     Indication: HYPOCALCAEMIA
     Dosage: UNK
     Route: 048
  10. CINACALCET HCL [Suspect]
     Active Substance: CINACALCET HYDROCHLORIDE
     Dosage: 75 MG, UNK
     Route: 048
     Dates: start: 20181010
  11. METOPROLOL. [Concomitant]
     Active Substance: METOPROLOL
     Dosage: 11.875 MG, QD
     Route: 048
     Dates: start: 2006
  12. HEART HEALTH [Concomitant]
     Indication: CORONARY ARTERY DISEASE
     Dosage: 2 DF, TID
     Route: 048
     Dates: start: 2016
  13. DILAZEP DIHYDROCHLORIDE [Concomitant]
     Active Substance: DILAZEP DIHYDROCHLORIDE
     Indication: END STAGE RENAL DISEASE
     Dosage: 1.2 G, TID
     Route: 048
     Dates: start: 20180110
  14. METOPROLOL. [Concomitant]
     Active Substance: METOPROLOL
     Indication: HYPERTENSION
     Dosage: 12.5 MG IN THE MORNING, 25 MG AT NOON AND IN THE EVENING, TID
     Route: 048
     Dates: start: 2006
  15. CALCIUM ACETATE. [Concomitant]
     Active Substance: CALCIUM ACETATE
     Indication: HYPERPHOSPHATAEMIA
     Dosage: 667 MG, TID
     Route: 048
     Dates: start: 20181128
  16. CINACALCET HCL [Suspect]
     Active Substance: CINACALCET HYDROCHLORIDE
     Indication: HYPERPARATHYROIDISM SECONDARY
     Dosage: 25 MG, UNK
     Route: 048
     Dates: start: 20180709, end: 20180805
  17. VITAMIN C [Concomitant]
     Active Substance: ASCORBIC ACID
     Indication: HAEMODIALYSIS COMPLICATION
     Dosage: 2 DF, QD
     Route: 048

REACTIONS (1)
  - Cardiac failure [Recovered/Resolved]

NARRATIVE: CASE EVENT DATE: 20181202
